FAERS Safety Report 7397992-8 (Version None)
Quarter: 2011Q2

REPORT INFORMATION
  Report Type: 
  Country: None (occurrence: None)
  Receive Date: 20110406
  Receipt Date: 20081201
  Transmission Date: 20111010
  Serious: Yes (Hospitalization)
  Sender: FDA-Public Use
  Company Number: US-AMGEN-QUU321902

PATIENT
  Sex: Female

DRUGS (4)
  1. IBUPROFEN [Concomitant]
     Dosage: UNK UNK, PRN
     Route: 064
  2. ENBREL [Suspect]
     Indication: RHEUMATOID ARTHRITIS
     Dosage: 25 MG, 2 TIMES/WK
     Route: 064
     Dates: end: 20070101
  3. PREDNISONE [Concomitant]
     Dosage: 10 MG, QD
     Route: 064
  4. PRENATAL VITAMINS [Concomitant]
     Dosage: UNK UNK, QD
     Route: 064

REACTIONS (3)
  - FEEDING DISORDER NEONATAL [None]
  - PNEUMOTHORAX [None]
  - PREMATURE BABY [None]
